FAERS Safety Report 8505675-3 (Version None)
Quarter: 2012Q3

REPORT INFORMATION
  Report Type: 
  Country: None (occurrence: None)
  Receive Date: 20120712
  Receipt Date: 20120702
  Transmission Date: 20120928
  Serious: Yes (Other)
  Sender: FDA-Public Use
  Company Number: JP-ASTRAZENECA-2012SE46503

PATIENT
  Age: 85 Year
  Sex: Female

DRUGS (2)
  1. CLARITHROMYCIN [Concomitant]
     Route: 048
  2. SEROQUEL [Suspect]
     Indication: AGGRESSION
     Route: 048
     Dates: start: 20120628, end: 20120628

REACTIONS (4)
  - OXYGEN SATURATION DECREASED [None]
  - INTENTIONAL DRUG MISUSE [None]
  - ASTHENIA [None]
  - BLOOD PRESSURE DECREASED [None]
